FAERS Safety Report 4463999-3 (Version None)
Quarter: 2004Q3

REPORT INFORMATION
  Report Type: 
  Country: None (occurrence: None)
  Receive Date: 20040929
  Receipt Date: 20040913
  Transmission Date: 20050211
  Serious: Yes (Hospitalization)
  Sender: FDA-Public Use
  Company Number: FR_040904750

PATIENT
  Age: 61 Year
  Sex: Male

DRUGS (1)
  1. CIALIS [Suspect]
     Indication: ERECTILE DYSFUNCTION
     Dosage: 1 DSG FORM/1 DAY
     Dates: start: 20040314

REACTIONS (4)
  - CONFUSIONAL STATE [None]
  - CONVULSION [None]
  - MYOCLONUS [None]
  - SYNCOPE [None]
